FAERS Safety Report 19206227 (Version 1)
Quarter: 2021Q2

REPORT INFORMATION
  Report Type: Spontaneous
  Country: US (occurrence: US)
  Receive Date: 20210503
  Receipt Date: 20210503
  Transmission Date: 20210717
  Serious: No
  Sender: FDA-Public Use
  Company Number: US-XTTRIUM LABORATORIES, INC-2110118

PATIENT
  Sex: Female

DRUGS (1)
  1. SCRUB CARE EXIDINE ?4 CHG [Suspect]
     Active Substance: CHLORHEXIDINE GLUCONATE
     Route: 048
     Dates: start: 20210225, end: 20210225

REACTIONS (1)
  - Stomatitis [Recovered/Resolved]

NARRATIVE: CASE EVENT DATE: 20210225
